FAERS Safety Report 4808153-8 (Version None)
Quarter: 2005Q4

REPORT INFORMATION
  Report Type: 
  Country: None (occurrence: None)
  Receive Date: 20051021
  Receipt Date: 20021106
  Transmission Date: 20060501
  Serious: Yes (Other)
  Sender: FDA-Public Use
  Company Number: USA021123470

PATIENT
  Age: 64 Year
  Sex: Male
  Weight: 55 kg

DRUGS (6)
  1. ZYPREXA [Suspect]
     Indication: ACUTE PSYCHOSIS
     Dosage: 10 MG /AT BETIME
     Dates: start: 20021017, end: 20021029
  2. ZYPREXA [Suspect]
     Indication: DELIRIUM TREMENS
     Dosage: 10 MG /AT BETIME
     Dates: start: 20021017, end: 20021029
  3. VANCOMYCIN [Suspect]
     Indication: SEPSIS
     Dosage: 1 G/DAY
  4. DILANTIN [Concomitant]
  5. PRIMAXIN [Concomitant]
  6. LEVAQUIN [Concomitant]

REACTIONS (5)
  - NEUTROPENIA [None]
  - RASH [None]
  - RED BLOOD CELL COUNT DECREASED [None]
  - SEPSIS [None]
  - WHITE BLOOD CELL COUNT DECREASED [None]
